FAERS Safety Report 16684587 (Version 14)
Quarter: 2020Q2

REPORT INFORMATION
  Report Type: Report from Study
  Country: US (occurrence: US)
  Receive Date: 20190808
  Receipt Date: 20200414
  Transmission Date: 20200713
  Serious: Yes (Hospitalization)
  Sender: FDA-Public Use
  Company Number: US-ACTELION-A-NJ2019-193675

PATIENT
  Age: 53 Year
  Sex: Female
  Weight: 76.19 kg

DRUGS (10)
  1. VELETRI [Suspect]
     Active Substance: EPOPROSTENOL
     Indication: PULMONARY ARTERIAL HYPERTENSION
     Dosage: 8 NG/KG, PER MIN
     Route: 042
  2. UPTRAVI [Concomitant]
     Active Substance: SELEXIPAG
  3. VELETRI [Suspect]
     Active Substance: EPOPROSTENOL
     Dosage: 12 NG/KG, PER MIN
     Route: 042
  4. OPSUMIT [Suspect]
     Active Substance: MACITENTAN
     Indication: PULMONARY ARTERIAL HYPERTENSION
     Dosage: 10 MG, QD
     Route: 048
     Dates: start: 201907
  5. ESBRIET [Concomitant]
     Active Substance: PIRFENIDONE
     Dosage: UNK
  6. VELETRI [Suspect]
     Active Substance: EPOPROSTENOL
     Dosage: 10 NG/KG, PER MIN
     Route: 042
  7. VELETRI [Suspect]
     Active Substance: EPOPROSTENOL
     Dosage: 6 NG/KG, PER MIN
     Route: 042
  8. SILDENAFIL CITRATE. [Suspect]
     Active Substance: SILDENAFIL CITRATE
     Indication: PRODUCT USED FOR UNKNOWN INDICATION
     Dosage: UNK
     Route: 065
  9. VELETRI [Suspect]
     Active Substance: EPOPROSTENOL
     Dosage: 7 NG/KG, PER MIN
     Route: 042
  10. VELETRI [Suspect]
     Active Substance: EPOPROSTENOL
     Dosage: 4 NG/KG, PER MIN
     Route: 042

REACTIONS (26)
  - Dyspnoea [Unknown]
  - Bruxism [Not Recovered/Not Resolved]
  - Feeling hot [Unknown]
  - Sepsis [Unknown]
  - Nausea [Unknown]
  - Flushing [Unknown]
  - Headache [Unknown]
  - Pain in jaw [Unknown]
  - Oropharyngeal pain [Unknown]
  - Dyspnoea at rest [Not Recovered/Not Resolved]
  - Throat tightness [Unknown]
  - Cough [Not Recovered/Not Resolved]
  - Middle ear effusion [Unknown]
  - Miliaria [Unknown]
  - Drug intolerance [Unknown]
  - Hospitalisation [Unknown]
  - Vomiting [Unknown]
  - Back pain [Unknown]
  - Presyncope [Not Recovered/Not Resolved]
  - Rash [Unknown]
  - Catheter site pain [Unknown]
  - Oropharyngeal spasm [Unknown]
  - Chest pain [Not Recovered/Not Resolved]
  - Hypoxia [Unknown]
  - Muscle spasms [Not Recovered/Not Resolved]
  - Dyspnoea exertional [Not Recovered/Not Resolved]

NARRATIVE: CASE EVENT DATE: 20200114
